FAERS Safety Report 22309885 (Version 1)
Quarter: 2023Q2

REPORT INFORMATION
  Report Type: Spontaneous
  Country: US (occurrence: None)
  Receive Date: 20230510
  Receipt Date: 20230510
  Transmission Date: 20230722
  Serious: No
  Sender: FDA-Public Use
  Company Number: None

PATIENT
  Sex: Male

DRUGS (4)
  1. HERBALS\MITRAGYNINE [Suspect]
     Active Substance: HERBALS\MITRAGYNINE
     Indication: Product used for unknown indication
     Route: 048
  2. DIETARY SUPPLEMENT [Concomitant]
     Active Substance: DIETARY SUPPLEMENT
  3. Calm Magnesium [Concomitant]
  4. VITAMIN C [Concomitant]
     Active Substance: ASCORBIC ACID

REACTIONS (15)
  - Restless legs syndrome [None]
  - Withdrawal syndrome [None]
  - Sneezing [None]
  - Headache [None]
  - Panic attack [None]
  - Dyskinesia [None]
  - Diarrhoea [None]
  - Muscle atrophy [None]
  - Weight decreased [None]
  - Hyperhidrosis [None]
  - Chills [None]
  - Dependence [None]
  - Anger [None]
  - Irritability [None]
  - Verbal abuse [None]
